FAERS Safety Report 9402156 (Version 1)
Quarter: 2013Q3

REPORT INFORMATION
  Report Type: Spontaneous
  Country: US (occurrence: None)
  Receive Date: 20130712
  Receipt Date: 20130712
  Transmission Date: 20140515
  Serious: Yes (Hospitalization)
  Sender: FDA-Public Use
  Company Number: None

PATIENT
  Age: 51 Year
  Sex: Male
  Weight: 84.16 kg

DRUGS (1)
  1. CISPLATIN [Suspect]

REACTIONS (7)
  - Abdominal pain [None]
  - Pain in extremity [None]
  - Constipation [None]
  - Drug ineffective [None]
  - Restlessness [None]
  - Paraesthesia [None]
  - Feeding tube complication [None]
